FAERS Safety Report 8809443 (Version 2)
Quarter: 2013Q1

REPORT INFORMATION
  Report Type: Spontaneous
  Country: GB (occurrence: GB)
  Receive Date: 20120926
  Receipt Date: 20130111
  Transmission Date: 20140127
  Serious: Yes (Life-Threatening, Hospitalization)
  Sender: FDA-Public Use
  Company Number: GB-BAUSCH-BL-2012-000937

PATIENT
  Age: 60 Year
  Sex: Male
  Weight: 108 kg

DRUGS (38)
  1. PREDNISOLONE [Suspect]
     Indication: DIFFUSE LARGE B-CELL LYMPHOMA
     Dosage: EVERY 3 WEEKS
     Route: 048
     Dates: start: 20111205
  2. CYCLOPHOSPHAMIDE [Suspect]
     Indication: DIFFUSE LARGE B-CELL LYMPHOMA
     Dosage: EVERY 3 WEEKS
     Dates: start: 20111205
  3. DOXORUBICIN HYDROCHLORIDE [Suspect]
     Indication: DIFFUSE LARGE B-CELL LYMPHOMA
     Dosage: EVERY 3 WEEKS
     Dates: start: 20111205
  4. VINCRISTINE [Suspect]
     Indication: DIFFUSE LARGE B-CELL LYMPHOMA
     Dosage: 1 IN 3 WEEKS
     Dates: start: 20111205
  5. NO DRUG NAME [Concomitant]
     Indication: PRODUCT USED FOR UNKNOWN INDICATION
     Dates: start: 20120515, end: 20120515
  6. NO DRUG NAME [Concomitant]
     Indication: PAIN IN EXTREMITY
     Dates: start: 20111108
  7. NO DRUG NAME [Concomitant]
     Indication: PRODUCT USED FOR UNKNOWN INDICATION
     Dates: start: 20111118
  8. NO DRUG NAME [Concomitant]
     Indication: PRODUCT USED FOR UNKNOWN INDICATION
     Dates: start: 20111118
  9. NO DRUG NAME [Concomitant]
     Indication: HYPERTENSION
  10. NO DRUG NAME [Concomitant]
     Indication: CELLULITIS
  11. NO DRUG NAME [Concomitant]
     Indication: PAIN
     Dates: start: 20120714, end: 20120714
  12. NO DRUG NAME [Concomitant]
     Indication: HYPERCHOLESTEROLAEMIA
  13. NO DRUG NAME [Concomitant]
     Indication: PRODUCT USED FOR UNKNOWN INDICATION
     Dates: start: 20111205, end: 20120515
  14. NO DRUG NAME [Concomitant]
     Indication: CONSTIPATION
     Dates: start: 20120707, end: 20120707
  15. NO DRUG NAME [Concomitant]
     Indication: PRODUCT USED FOR UNKNOWN INDICATION
     Dates: start: 20120129, end: 20120129
  16. NO DRUG NAME [Concomitant]
     Indication: HYPERCHOLESTEROLAEMIA
     Dates: start: 20120725
  17. NO DRUG NAME [Concomitant]
     Indication: PAIN
     Dates: start: 20120707, end: 20120709
  18. NO DRUG NAME [Concomitant]
     Indication: PYREXIA
     Dates: start: 20120109, end: 20120109
  19. NO DRUG NAME [Concomitant]
     Indication: PRODUCT USED FOR UNKNOWN INDICATION
  20. NO DRUG NAME [Concomitant]
     Indication: PRODUCT USED FOR UNKNOWN INDICATION
     Dates: start: 20111205, end: 20120515
  21. NO DRUG NAME [Concomitant]
     Indication: THROMBOSIS
     Dates: start: 20120703, end: 20120714
  22. NO DRUG NAME [Concomitant]
     Indication: DIABETES MELLITUS
     Dates: start: 20120109, end: 20120109
  23. NO DRUG NAME [Concomitant]
     Indication: PYREXIA
     Dates: start: 20120109, end: 20120109
  24. NO DRUG NAME [Concomitant]
     Indication: DIABETES MELLITUS
  25. NO DRUG NAME [Concomitant]
     Indication: PAIN
     Dates: start: 20120707, end: 20120725
  26. NO DRUG NAME [Concomitant]
     Indication: DIABETES MELLITUS
  27. NO DRUG NAME [Concomitant]
     Indication: NASAL CONGESTION
     Dates: start: 20120714, end: 20120725
  28. NO DRUG NAME [Concomitant]
     Indication: PAIN
     Dates: start: 20120707, end: 20120725
  29. NO DRUG NAME [Concomitant]
     Indication: PAIN IN EXTREMITY
     Dates: start: 20120703, end: 20120704
  30. NO DRUG NAME [Concomitant]
     Indication: DIABETES MELLITUS
     Dates: start: 20120625
  31. NO DRUG NAME [Concomitant]
     Indication: BLOOD POTASSIUM DECREASED
     Dates: start: 20120703, end: 20120706
  32. NO DRUG NAME [Concomitant]
     Indication: PRODUCT USED FOR UNKNOWN INDICATION
     Dates: start: 20111205, end: 20120515
  33. NO DRUG NAME [Concomitant]
     Indication: DIABETES MELLITUS
  34. NO DRUG NAME [Concomitant]
     Indication: DEHYDRATION
     Dates: start: 20120719, end: 20120721
  35. NO DRUG NAME [Concomitant]
     Indication: HYPOTENSION
     Dates: start: 20111216, end: 20111216
  36. NO DRUG NAME [Concomitant]
     Indication: BLISTER
     Dates: start: 20120327
  37. NO DRUG NAME [Concomitant]
     Indication: VITAMIN B12 DEFICIENCY
     Dates: start: 20120326
  38. NO DRUG NAME [Concomitant]
     Indication: PRODUCT USED FOR UNKNOWN INDICATION
     Dates: start: 20111128

REACTIONS (8)
  - Acute myocardial infarction [Not Recovered/Not Resolved]
  - Cytotoxic cardiomyopathy [Not Recovered/Not Resolved]
  - Adrenal insufficiency [Recovered/Resolved]
  - Cellulitis [Recovered/Resolved]
  - Constipation [Recovered/Resolved]
  - Febrile neutropenia [Recovered/Resolved]
  - Pyrexia [Recovered/Resolved]
  - Hypotension [Recovered/Resolved]
